FAERS Safety Report 5277233-8 (Version None)
Quarter: 2007Q1

REPORT INFORMATION
  Report Type: 
  Country: None (occurrence: None)
  Receive Date: 20070322
  Receipt Date: 20070322
  Transmission Date: 20070707
  Serious: Yes (Hospitalization)
  Sender: FDA-Public Use
  Company Number: None

PATIENT
  Age: 64 Year
  Sex: Male

DRUGS (1)
  1. WARFARIN SODIUM [Suspect]
     Indication: PULMONARY EMBOLISM
     Dosage: 7.5MG OTHER PO
     Route: 048
     Dates: start: 20030101

REACTIONS (3)
  - ARTERIAL RUPTURE [None]
  - EPISTAXIS [None]
  - HAEMORRHAGE [None]
